FAERS Safety Report 18905655 (Version 2)
Quarter: 2021Q3

REPORT INFORMATION
  Report Type: Spontaneous
  Country: DE (occurrence: DE)
  Receive Date: 20210217
  Receipt Date: 20210701
  Transmission Date: 20211014
  Serious: Yes (Other)
  Sender: FDA-Public Use
  Company Number: NVSC2021DE021499

PATIENT
  Age: 31 Year
  Sex: Female

DRUGS (3)
  1. IVABRADINE [Suspect]
     Active Substance: IVABRADINE
     Indication: TACHYCARDIA
     Dosage: UNK
     Route: 065
  2. NAPROXEN. [Suspect]
     Active Substance: NAPROXEN
     Indication: TACHYCARDIA
     Dosage: UNK
     Route: 065
  3. METAMIZOLE [Suspect]
     Active Substance: METAMIZOLE
     Indication: TACHYCARDIA
     Dosage: UNK
     Route: 065

REACTIONS (9)
  - Third trimester pregnancy [Unknown]
  - Exposure during pregnancy [Unknown]
  - Second trimester pregnancy [Unknown]
  - Contraindicated product administered [Unknown]
  - Premature delivery [Unknown]
  - Product use in unapproved indication [Unknown]
  - Polyhydramnios [Recovered/Resolved]
  - First trimester pregnancy [Unknown]
  - Maternal exposure during pregnancy [Unknown]

NARRATIVE: CASE EVENT DATE: 2019
